FAERS Safety Report 18043443 (Version 1)
Quarter: 2020Q3

REPORT INFORMATION
  Report Type: Spontaneous
  Country: CN (occurrence: CN)
  Receive Date: 20200720
  Receipt Date: 20200720
  Transmission Date: 20201103
  Serious: Yes (Other)
  Sender: FDA-Public Use
  Company Number: CN-ROCHE-2641801

PATIENT
  Age: 62 Year
  Sex: Female

DRUGS (13)
  1. PERJETA [Suspect]
     Active Substance: PERTUZUMAB
     Indication: HER2 POSITIVE BREAST CANCER
     Route: 065
     Dates: start: 20190101
  2. PACLITAXEL ALBUMIN [Concomitant]
     Active Substance: PACLITAXEL
     Indication: HER2 POSITIVE BREAST CANCER
  3. CARBOPLATIN. [Suspect]
     Active Substance: CARBOPLATIN
     Indication: HER2 POSITIVE BREAST CANCER
     Route: 065
     Dates: start: 20190101
  4. HERCEPTIN [Suspect]
     Active Substance: TRASTUZUMAB
     Indication: HER2 POSITIVE BREAST CANCER
     Dosage: 01/JAN/2019
     Route: 065
  5. GEMCITABINE. [Suspect]
     Active Substance: GEMCITABINE
     Indication: HER2 POSITIVE BREAST CANCER
     Route: 065
     Dates: start: 20190101
  6. XELODA [Suspect]
     Active Substance: CAPECITABINE
     Indication: HER2 POSITIVE BREAST CANCER
     Route: 048
  7. DOCETAXEL. [Concomitant]
     Active Substance: DOCETAXEL
     Indication: HER2 POSITIVE BREAST CANCER
  8. FULVESTRANT. [Concomitant]
     Active Substance: FULVESTRANT
     Indication: HER2 POSITIVE BREAST CANCER
  9. DOXORUBICIN HYDROCHLORIDE LIPOSOME [Concomitant]
     Active Substance: DOXORUBICIN HYDROCHLORIDE
     Indication: HER2 POSITIVE BREAST CANCER
  10. GRANULOCYTE COLONY?STIMULATING FACTOR INJECTION (G?CSF) (UNK INGREDIEN [Concomitant]
     Dates: start: 20190101
  11. ANASTROZOLE. [Concomitant]
     Active Substance: ANASTROZOLE
  12. CYCLOPHOSPHAMIDE. [Concomitant]
     Active Substance: CYCLOPHOSPHAMIDE
     Indication: HER2 POSITIVE BREAST CANCER
  13. PACLITAXEL ALBUMIN [Concomitant]
     Active Substance: PACLITAXEL

REACTIONS (1)
  - Myelosuppression [Unknown]
